FAERS Safety Report 12338999 (Version 4)
Quarter: 2016Q3

REPORT INFORMATION
  Report Type: Spontaneous
  Country: US (occurrence: US)
  Receive Date: 20160505
  Receipt Date: 20160713
  Transmission Date: 20161109
  Serious: Yes (Hospitalization)
  Sender: FDA-Public Use
  Company Number: US-PFIZER INC-2016240279

PATIENT
  Age: 59 Year
  Sex: Female
  Weight: 115.65 kg

DRUGS (3)
  1. LYRICA [Suspect]
     Active Substance: PREGABALIN
     Indication: KNEE OPERATION
     Dosage: 225 MG, 2X/DAY
  2. LYRICA [Suspect]
     Active Substance: PREGABALIN
     Indication: MUSCULOSKELETAL DISORDER
  3. LYRICA [Suspect]
     Active Substance: PREGABALIN
     Indication: DIABETES MELLITUS

REACTIONS (9)
  - Insomnia [Recovered/Resolved]
  - Product use issue [Unknown]
  - Anxiety [Unknown]
  - Nasal congestion [Not Recovered/Not Resolved]
  - Withdrawal syndrome [Recovered/Resolved]
  - Burning sensation [Unknown]
  - Paraesthesia [Unknown]
  - Headache [Recovered/Resolved]
  - Agitation [Recovering/Resolving]
